FAERS Safety Report 17183035 (Version 1)
Quarter: 2019Q4

REPORT INFORMATION
  Report Type: Spontaneous
  Country: US (occurrence: US)
  Receive Date: 20191220
  Receipt Date: 20191220
  Transmission Date: 20200122
  Serious: Yes (Other)
  Sender: FDA-Public Use
  Company Number: US-LUPIN PHARMACEUTICALS INC.-2019-08471

PATIENT
  Age: 88 Year
  Sex: Female

DRUGS (3)
  1. AMLODIPINE BESYLATE TABLETS USP, 2.5 MG [Suspect]
     Active Substance: AMLODIPINE BESYLATE
     Indication: PRODUCT USED FOR UNKNOWN INDICATION
     Dosage: UNK
     Route: 065
     Dates: start: 2019
  2. DULOXETINE. [Suspect]
     Active Substance: DULOXETINE
     Indication: NERVE INJURY
     Dosage: UNK
     Route: 065
     Dates: start: 2019
  3. DULOXETINE. [Suspect]
     Active Substance: DULOXETINE
     Indication: NEURALGIA

REACTIONS (11)
  - Hypersensitivity [Unknown]
  - Oral pain [Unknown]
  - Macular degeneration [Unknown]
  - Ocular hyperaemia [Unknown]
  - Eye irritation [Unknown]
  - Eye swelling [Unknown]
  - Eye disorder [Unknown]
  - Fear of death [Unknown]
  - Condition aggravated [Unknown]
  - Nasal discomfort [Unknown]
  - Pruritus [Unknown]
